FAERS Safety Report 22726288 (Version 2)
Quarter: 2024Q2

REPORT INFORMATION
  Report Type: Report from Study
  Country: US (occurrence: US)
  Receive Date: 20230720
  Receipt Date: 20240613
  Transmission Date: 20240716
  Serious: Yes (Other)
  Sender: FDA-Public Use
  Company Number: US-ABBVIE-5333637

PATIENT
  Sex: Male

DRUGS (2)
  1. SKYRIZI [Suspect]
     Active Substance: RISANKIZUMAB-RZAA
     Indication: Psoriasis
     Route: 058
  2. SKYRIZI [Suspect]
     Active Substance: RISANKIZUMAB-RZAA
     Route: 058
     Dates: start: 20220228

REACTIONS (4)
  - Cataract [Not Recovered/Not Resolved]
  - Glycosylated haemoglobin decreased [Recovered/Resolved]
  - Diabetes mellitus [Not Recovered/Not Resolved]
  - Retinal disorder [Unknown]

NARRATIVE: CASE EVENT DATE: 20230101
